FAERS Safety Report 4512811-2 (Version None)
Quarter: 2004Q4

REPORT INFORMATION
  Report Type: 
  Country: None (occurrence: None)
  Receive Date: 20041130
  Receipt Date: 20041117
  Transmission Date: 20050328
  Serious: Yes (Hospitalization, Other)
  Sender: FDA-Public Use
  Company Number: GB-JNJFOC-20041104011

PATIENT
  Sex: Female
  Weight: 55 kg

DRUGS (11)
  1. REMICADE [Suspect]
     Indication: RHEUMATOID ARTHRITIS
     Route: 042
  2. LITHIUM [Concomitant]
  3. SULFASALAZINE [Concomitant]
  4. FENOPRON [Concomitant]
  5. METHOTREXATE [Concomitant]
  6. FOLIC ACID [Concomitant]
  7. CO-PROXAMOL [Concomitant]
  8. CO-PROXAMOL [Concomitant]
  9. PRIADEL [Concomitant]
  10. FOSAMAX [Concomitant]
  11. TIBOLONE [Concomitant]

REACTIONS (2)
  - CARDIAC DISORDER [None]
  - STENT PLACEMENT [None]
